FAERS Safety Report 13499679 (Version 1)
Quarter: 2017Q2

REPORT INFORMATION
  Report Type: Spontaneous
  Country: US (occurrence: US)
  Receive Date: 20170430
  Receipt Date: 20170430
  Transmission Date: 20170830
  Serious: Yes (Life-Threatening, Hospitalization)
  Sender: FDA-Public Use
  Company Number: None

PATIENT
  Age: 70 Year
  Sex: Male
  Weight: 75.75 kg

DRUGS (1)
  1. NAPROXEN. [Suspect]
     Active Substance: NAPROXEN
     Indication: PAIN
     Route: 048
     Dates: start: 20170221, end: 20170315

REACTIONS (9)
  - Productive cough [None]
  - Dyspnoea [None]
  - Rhinorrhoea [None]
  - Wheezing [None]
  - Tachypnoea [None]
  - Eosinophilic pneumonia [None]
  - Cough [None]
  - Pulmonary congestion [None]
  - Respiratory distress [None]

NARRATIVE: CASE EVENT DATE: 20170315
